FAERS Safety Report 19182931 (Version 1)
Quarter: 2021Q2

REPORT INFORMATION
  Report Type: Spontaneous
  Country: US (occurrence: US)
  Receive Date: 20210427
  Receipt Date: 20210427
  Transmission Date: 20210717
  Serious: No
  Sender: FDA-Public Use
  Company Number: US-Y-MABS THERAPEUTICS-2109828

PATIENT
  Sex: Male

DRUGS (2)
  1. S2 RACEPINEPHRINE MULTI?DOSE [Concomitant]
     Active Substance: RACEPINEPHRINE HYDROCHLORIDE
  2. DANYELZA [Suspect]
     Active Substance: NAXITAMAB-GQGK
     Indication: NEUROBLASTOMA
     Route: 042

REACTIONS (3)
  - Headache [Unknown]
  - Abdominal pain upper [Unknown]
  - Dyspnoea [Unknown]

NARRATIVE: CASE EVENT DATE: 20210405
